FAERS Safety Report 14848393 (Version 3)
Quarter: 2018Q3

REPORT INFORMATION
  Report Type: Report from Study
  Country: UG (occurrence: UG)
  Receive Date: 20180504
  Receipt Date: 20180821
  Transmission Date: 20181010
  Serious: Yes (Other)
  Sender: FDA-Public Use
  Company Number: UG-VIIV HEALTHCARE LIMITED-UG2018GSK075969

PATIENT
  Age: 26 Year
  Sex: Female
  Weight: 74 kg

DRUGS (5)
  1. LAMIVUDINE + TENOFOVIR DISOPROXIL FUMARATE [Concomitant]
     Active Substance: LAMIVUDINE\TENOFOVIR DISOPROXIL FUMARATE
     Dosage: 600 MG, 1D
     Dates: start: 20180327
  2. DOLUTEGRAVIR [Suspect]
     Active Substance: DOLUTEGRAVIR
     Indication: HIV INFECTION
     Dosage: 50 MG, 1D
     Route: 064
     Dates: start: 20180327
  3. FEFOL [Concomitant]
     Active Substance: FERROUS SULFATE\FOLIC ACID
     Dosage: 1 DF, 1D
     Dates: start: 20180326
  4. COTRIMOXAZOLE [Concomitant]
     Active Substance: SULFAMETHOXAZOLE\TRIMETHOPRIM
     Dosage: 960 MG, 1D
     Dates: start: 20180327
  5. BENZATHINE PENICILLIN [Concomitant]
     Active Substance: PENICILLIN G BENZATHINE
     Dosage: 2.4 UNK, UNK
     Dates: start: 20180424

REACTIONS (1)
  - Stillbirth [Recovered/Resolved]

NARRATIVE: CASE EVENT DATE: 20180429
